FAERS Safety Report 18220861 (Version 1)
Quarter: 2020Q3

REPORT INFORMATION
  Report Type: Spontaneous
  Country: AR (occurrence: AR)
  Receive Date: 20200902
  Receipt Date: 20200902
  Transmission Date: 20201103
  Serious: Yes (Other)
  Sender: FDA-Public Use
  Company Number: AR-PFIZER INC-2020337021

PATIENT
  Age: 72 Year
  Sex: Female

DRUGS (1)
  1. IBRANCE [Suspect]
     Active Substance: PALBOCICLIB
     Indication: BREAST CANCER METASTATIC
     Dosage: 125 MG, CYCLIC (DAILY, CYCLIC 3X1)
     Dates: start: 20190822

REACTIONS (6)
  - Gastric disorder [Unknown]
  - Diverticulum [Unknown]
  - Second primary malignancy [Unknown]
  - Thyroid cancer [Unknown]
  - Fall [Unknown]
  - Cataract [Unknown]
